FAERS Safety Report 5821513-1 (Version None)
Quarter: 2008Q3

REPORT INFORMATION
  Report Type: 
  Country: None (occurrence: None)
  Receive Date: 20080724
  Receipt Date: 20080211
  Transmission Date: 20090109
  Serious: No
  Sender: FDA-Public Use
  Company Number: US-BAYER-200810674BCC

PATIENT
  Sex: Female

DRUGS (3)
  1. ALEVE [Suspect]
     Indication: PAIN
     Route: 048
  2. GAS X [Concomitant]
  3. BEANO [Concomitant]

REACTIONS (1)
  - PAIN [None]
